FAERS Safety Report 9002819 (Version 3)
Quarter: 2013Q1

REPORT INFORMATION
  Report Type: Spontaneous
  Country: JP (occurrence: None)
  Receive Date: 20121226
  Receipt Date: 20130212
  Transmission Date: 20140127
  Serious: Yes (Hospitalization, Other)
  Sender: FDA-Public Use
  Company Number: AXC-2012-000589

PATIENT
  Age: 37 Year
  Sex: Male

DRUGS (4)
  1. URSODEOXYCHOLIC ACID [Suspect]
     Indication: PRODUCT USED FOR UNKNOWN INDICATION
     Route: 048
     Dates: start: 20120201, end: 20120202
  2. METHYCOBAL [Suspect]
     Indication: PRODUCT USED FOR UNKNOWN INDICATION
     Route: 048
     Dates: start: 20120117, end: 20120207
  3. STRONGER NEO-MINOPHAGEN C [Suspect]
     Indication: PRODUCT USED FOR UNKNOWN INDICATION
     Route: 042
     Dates: start: 20120128, end: 20120201
  4. ATP [Suspect]
     Indication: PRODUCT USED FOR UNKNOWN INDICATION
     Route: 048
     Dates: start: 20120127, end: 20130207

REACTIONS (6)
  - Drug eruption [None]
  - Erythema multiforme [None]
  - Pyrexia [None]
  - Swelling face [None]
  - Skin exfoliation [None]
  - Localised oedema [None]
